FAERS Safety Report 26176158 (Version 1)
Quarter: 2025Q4

REPORT INFORMATION
  Report Type: Spontaneous
  Country: US (occurrence: US)
  Receive Date: 20251218
  Receipt Date: 20251218
  Transmission Date: 20260118
  Serious: Yes (Hospitalization, Other)
  Sender: AMARIN PHARMA, INC.
  Company Number: US-Amarin Pharma  Inc-2025AMR000765

PATIENT
  Age: 67 Year
  Sex: Female

DRUGS (2)
  1. ICOSAPENT ETHYL [Suspect]
     Active Substance: ICOSAPENT ETHYL
     Indication: Hypertriglyceridaemia
  2. ASPIRIN [Concomitant]
     Active Substance: ASPIRIN
     Indication: Prophylaxis

REACTIONS (2)
  - Haemoptysis [Recovering/Resolving]
  - Pneumonia [Recovering/Resolving]
